FAERS Safety Report 5936466-5 (Version None)
Quarter: 2008Q4

REPORT INFORMATION
  Report Type: 
  Country: None (occurrence: None)
  Receive Date: 20081030
  Receipt Date: 19970604
  Transmission Date: 20090506
  Serious: Yes (Other)
  Sender: FDA-Public Use
  Company Number: US-BAXTER-2008BH010791

PATIENT
  Sex: Female

DRUGS (1)
  1. SODIUM CHLORIDE 0.9% IN PLASTIC CONTAINER [Suspect]
     Indication: DEHYDRATION
     Dosage: DOSE UNIT:UNKNOWN
     Route: 042

REACTIONS (1)
  - NECROSIS [None]
